FAERS Safety Report 4373612-1 (Version None)
Quarter: 2004Q1

REPORT INFORMATION
  Report Type: 
  Country: None (occurrence: None)
  Receive Date: 20040305
  Receipt Date: 20040204
  Transmission Date: 20041129
  Serious: Yes (Other)
  Sender: FDA-Public Use
  Company Number: 2004UW01916

PATIENT

DRUGS (1)
  1. CRESTOR [Suspect]

REACTIONS (2)
  - CORNEAL REFLEX DECREASED [None]
  - INSOMNIA [None]
